FAERS Safety Report 9772366 (Version 1)
Quarter: 2013Q4

REPORT INFORMATION
  Report Type: Spontaneous
  Country: US (occurrence: US)
  Receive Date: 20131219
  Receipt Date: 20131219
  Transmission Date: 20140711
  Serious: Yes (Other)
  Sender: FDA-Public Use
  Company Number: US-BAYER-2013-152471

PATIENT
  Age: 56 Year
  Sex: Female
  Weight: 60 kg

DRUGS (1)
  1. ALEVE TABLET [Suspect]
     Indication: GINGIVAL INFLAMMATION
     Dosage: 2 DF, BID
     Route: 048
     Dates: start: 20131205, end: 20131207

REACTIONS (5)
  - Hypersensitivity [None]
  - Eye swelling [Recovering/Resolving]
  - Throat irritation [Recovered/Resolved]
  - Off label use [None]
  - Extra dose administered [None]
